FAERS Safety Report 4626924-8 (Version None)
Quarter: 2005Q2

REPORT INFORMATION
  Report Type: 
  Country: None (occurrence: None)
  Receive Date: 20050405
  Receipt Date: 20050322
  Transmission Date: 20051028
  Serious: Yes (Hospitalization)
  Sender: FDA-Public Use
  Company Number: US-GLAXOSMITHKLINE-A0550762A

PATIENT
  Age: 84 Year
  Sex: Male
  Weight: 63.6 kg

DRUGS (2)
  1. ECOTRIN ADULT LOW STRENGTH TABLETS [Suspect]
     Indication: PROPHYLAXIS
     Route: 048
     Dates: start: 20040701
  2. ZOCOR [Concomitant]
     Route: 048

REACTIONS (2)
  - PARAESTHESIA [None]
  - SKIN DISCOLOURATION [None]
